FAERS Safety Report 23327153 (Version 1)
Quarter: 2023Q4

REPORT INFORMATION
  Report Type: Spontaneous
  Country: PL (occurrence: None)
  Receive Date: 20231221
  Receipt Date: 20231221
  Transmission Date: 20240110
  Serious: Yes (Hospitalization)
  Sender: FDA-Public Use
  Company Number: 2023A284803

PATIENT
  Age: 40 Year
  Sex: Female
  Weight: 60 kg

DRUGS (3)
  1. TRETINOIN [Suspect]
     Active Substance: TRETINOIN
     Route: 048
     Dates: start: 20210822, end: 20210822
  2. MIANSERIN HYDROCHLORIDE [Suspect]
     Active Substance: MIANSERIN HYDROCHLORIDE
     Route: 048
     Dates: start: 20210822, end: 20210822
  3. DIAZEPAM [Suspect]
     Active Substance: DIAZEPAM
     Route: 048
     Dates: start: 20210822, end: 20210822

REACTIONS (3)
  - Toxicity to various agents [Not Recovered/Not Resolved]
  - Suicide attempt [Not Recovered/Not Resolved]
  - Loss of consciousness [Not Recovered/Not Resolved]
